FAERS Safety Report 7483240-7 (Version None)
Quarter: 2011Q2

REPORT INFORMATION
  Report Type: 
  Country: None (occurrence: None)
  Receive Date: 20110517
  Receipt Date: 20110511
  Transmission Date: 20111010
  Serious: Yes (Other)
  Sender: FDA-Public Use
  Company Number: US-BRISTOL-MYERS SQUIBB COMPANY-15739782

PATIENT
  Age: 19 Year
  Sex: Male

DRUGS (2)
  1. ASACOL [Concomitant]
  2. ABILIFY [Suspect]
     Indication: AUTISM
     Route: 048

REACTIONS (1)
  - CATARACT [None]
